FAERS Safety Report 10489744 (Version 2)
Quarter: 2014Q4

REPORT INFORMATION
  Report Type: Report from Study
  Country: IE (occurrence: IE)
  Receive Date: 20141002
  Receipt Date: 20141002
  Transmission Date: 20150528
  Serious: Yes (Hospitalization)
  Sender: FDA-Public Use
  Company Number: IE-AMGEN-IRLSP2014048911

PATIENT
  Age: 90 Year
  Sex: Male

DRUGS (14)
  1. ARANESP [Suspect]
     Active Substance: DARBEPOETIN ALFA
     Indication: MYELODYSPLASTIC SYNDROME
     Dosage: ONCE OFF DOSES PRESCRIBED
     Route: 058
     Dates: start: 20111013
  2. CODINEX [Concomitant]
     Dosage: UNK
     Route: 065
  3. GAVISCON                           /00237601/ [Concomitant]
     Active Substance: ALUMINUM HYDROXIDE\MAGNESIUM CARBONATE
     Dosage: UNK
     Route: 065
  4. AMLID [Concomitant]
     Dosage: UNK
     Route: 065
  5. HYDROCORTISONE. [Concomitant]
     Active Substance: HYDROCORTISONE
     Dosage: UNK
     Route: 065
  6. NEXIUM [Concomitant]
     Active Substance: ESOMEPRAZOLE MAGNESIUM
     Dosage: UNK
     Route: 065
  7. BISOP [Concomitant]
     Dosage: UNK
     Route: 065
  8. LANOXIN [Concomitant]
     Active Substance: DIGOXIN
     Dosage: UNK
     Route: 065
  9. DOMPERIDONE [Concomitant]
     Active Substance: DOMPERIDONE
     Dosage: UNK
     Route: 065
  10. MAXOLON [Concomitant]
     Active Substance: METOCLOPRAMIDE HYDROCHLORIDE
     Dosage: UNK
     Route: 065
  11. NORTEM [Concomitant]
     Dosage: UNK
     Route: 065
  12. IMOGAS [Concomitant]
     Active Substance: DIMETHICONE\SILICON DIOXIDE\SIMETHICONE
     Dosage: UNK
     Route: 065
  13. IMODIUM [Concomitant]
     Active Substance: LOPERAMIDE HYDROCHLORIDE
     Dosage: UNK
     Route: 065
  14. NUSEALS ASPIRN [Concomitant]
     Dosage: UNK
     Route: 065

REACTIONS (2)
  - Investigation [Unknown]
  - Haemoglobin decreased [Unknown]
